FAERS Safety Report 10173978 (Version 1)
Quarter: 2014Q2

REPORT INFORMATION
  Report Type: Spontaneous
  Country: GB (occurrence: None)
  Receive Date: 20140513
  Receipt Date: 20140513
  Transmission Date: 20141212
  Serious: Yes (Hospitalization)
  Sender: FDA-Public Use
  Company Number: SP07811

PATIENT
  Age: 65 Year
  Sex: Female

DRUGS (2)
  1. MOVIPREP [Suspect]
     Indication: BOWEL PREPARATION
     Dosage: 2 LITERS
     Dates: start: 20140421, end: 20140422
  2. LANSOPRAZOLE [Concomitant]

REACTIONS (3)
  - Fall [None]
  - Hypovolaemia [None]
  - Hyponatraemia [None]
